FAERS Safety Report 23103263 (Version 1)
Quarter: 2023Q4

REPORT INFORMATION
  Report Type: Spontaneous
  Country: US (occurrence: US)
  Receive Date: 20231025
  Receipt Date: 20231025
  Transmission Date: 20240109
  Serious: Yes (Other)
  Sender: FDA-Public Use
  Company Number: US-MACLEODS PHARMACEUTICALS US LTD-MAC2023043956

PATIENT

DRUGS (4)
  1. LEVOTHYROXINE [Suspect]
     Active Substance: LEVOTHYROXINE
     Indication: Autoimmune thyroiditis
     Dosage: 25 MICROGRAM
     Route: 065
  2. LEVOTHYROXINE [Suspect]
     Active Substance: LEVOTHYROXINE
     Dosage: 300 MICROGRAM
     Route: 065
  3. ESCITALOPRAM [Concomitant]
     Active Substance: ESCITALOPRAM OXALATE
     Indication: Product used for unknown indication
     Dosage: 10 MILLIGRAM, QD
     Route: 065
  4. BUPROPION [Concomitant]
     Active Substance: BUPROPION
     Indication: Product used for unknown indication
     Dosage: 100 MILLIGRAM, BID
     Route: 065

REACTIONS (9)
  - Suicidal ideation [Recovering/Resolving]
  - Hyperthyroidism [Recovering/Resolving]
  - Condition aggravated [Recovering/Resolving]
  - Depression [Recovering/Resolving]
  - Orthostatic hypotension [Recovering/Resolving]
  - Lethargy [Recovering/Resolving]
  - Diarrhoea [Recovering/Resolving]
  - Product prescribing error [Unknown]
  - Prescribed overdose [Unknown]
